FAERS Safety Report 9958351 (Version 1)
Quarter: 2014Q1

REPORT INFORMATION
  Report Type: Spontaneous
  Country: FR (occurrence: FR)
  Receive Date: 20140305
  Receipt Date: 20140305
  Transmission Date: 20141002
  Serious: Yes (Hospitalization)
  Sender: FDA-Public Use
  Company Number: FR-ROCHE-1355767

PATIENT
  Age: 89 Year
  Sex: Female

DRUGS (14)
  1. ROCEPHINE [Suspect]
     Indication: LUNG INFECTION
     Route: 042
     Dates: start: 20120221, end: 20120302
  2. SOLU-MEDROL [Suspect]
     Indication: BRONCHIAL DISORDER
     Route: 042
     Dates: start: 20120221, end: 20120221
  3. BURINEX [Suspect]
     Indication: PRODUCT USED FOR UNKNOWN INDICATION
     Route: 048
     Dates: end: 20120221
  4. CORDARONE [Concomitant]
     Route: 065
  5. KALEORID [Concomitant]
     Route: 065
  6. SPECIAFOLDINE [Concomitant]
     Route: 065
  7. ZOPICLONE [Concomitant]
     Route: 065
  8. TRANSIPEG (FRANCE) [Concomitant]
  9. GLUCOR [Concomitant]
     Route: 065
  10. LANTUS [Concomitant]
  11. PREVISCAN (FRANCE) [Concomitant]
     Dosage: 1/4 TABLET
     Route: 065
  12. AUGMENTIN [Concomitant]
  13. BUDESONIDE [Concomitant]
  14. SOLUPRED (FRANCE) [Concomitant]
     Route: 065

REACTIONS (4)
  - Renal failure acute [Recovered/Resolved]
  - Hypernatraemia [Recovered/Resolved]
  - Hyperglycaemia [Recovered/Resolved]
  - Dehydration [Recovered/Resolved]
